FAERS Safety Report 4365522-0 (Version None)
Quarter: 2004Q2

REPORT INFORMATION
  Report Type: 
  Country: None (occurrence: None)
  Receive Date: 20040526
  Receipt Date: 20040525
  Transmission Date: 20050107
  Serious: Yes (Life-Threatening, Hospitalization, Disabling, Other)
  Sender: FDA-Public Use
  Company Number: US-GLAXOSMITHKLINE-A0512074A

PATIENT
  Age: 63 Year
  Sex: Male

DRUGS (6)
  1. LEXIVA [Suspect]
     Indication: HIV INFECTION
     Route: 048
     Dates: start: 20040301, end: 20040501
  2. VIREAD [Concomitant]
  3. VIDEX [Concomitant]
  4. EPIVIR [Concomitant]
  5. NORVIR [Concomitant]
  6. AMIODARONE HCL [Concomitant]
     Indication: ARRHYTHMIA

REACTIONS (2)
  - HYPERCHOLESTEROLAEMIA [None]
  - MYOCARDIAL INFARCTION [None]
